FAERS Safety Report 13818861 (Version 1)
Quarter: 2017Q3

REPORT INFORMATION
  Report Type: Spontaneous
  Country: FR (occurrence: FR)
  Receive Date: 20170801
  Receipt Date: 20170801
  Transmission Date: 20171127
  Serious: Yes (Other)
  Sender: FDA-Public Use
  Company Number: FR-ROCHE-GNE278286

PATIENT
  Age: 74 Year
  Sex: Male

DRUGS (1)
  1. ACTILYSE [Suspect]
     Active Substance: ALTEPLASE
     Indication: EMBOLIC STROKE
     Route: 042

REACTIONS (4)
  - Decerebrate posture [Recovered/Resolved]
  - Ophthalmoplegia [Unknown]
  - Drug ineffective [Unknown]
  - Depressed level of consciousness [Unknown]
